FAERS Safety Report 12560933 (Version 3)
Quarter: 2016Q4

REPORT INFORMATION
  Report Type: Spontaneous
  Country: JP (occurrence: JP)
  Receive Date: 20160715
  Receipt Date: 20161004
  Transmission Date: 20170207
  Serious: Yes (Hospitalization)
  Sender: FDA-Public Use
  Company Number: JP-ELI_LILLY_AND_COMPANY-JP201602005150

PATIENT
  Age: 67 Year
  Sex: Female
  Weight: 47.2 kg

DRUGS (1)
  1. CYRAMZA [Suspect]
     Active Substance: RAMUCIRUMAB
     Indication: GASTRIC CANCER RECURRENT
     Dosage: 400 MG, OTHER
     Route: 042
     Dates: start: 20151116, end: 20160317

REACTIONS (5)
  - Diarrhoea [Recovering/Resolving]
  - Ascites [Not Recovered/Not Resolved]
  - Cancer pain [Not Recovered/Not Resolved]
  - Diarrhoea [Unknown]
  - Pericardial effusion [Recovered/Resolved]

NARRATIVE: CASE EVENT DATE: 20160118
